FAERS Safety Report 17200815 (Version 1)
Quarter: 2019Q4

REPORT INFORMATION
  Report Type: Spontaneous
  Country: ES (occurrence: ES)
  Receive Date: 20191226
  Receipt Date: 20191226
  Transmission Date: 20200122
  Serious: Yes (Other)
  Sender: FDA-Public Use
  Company Number: ES-GLAXOSMITHKLINE-ES2019229922

PATIENT
  Age: 35 Year
  Sex: Female

DRUGS (2)
  1. SENIORAL [CLOCINIZINE HYDROCHLORIDE\PHENYLPROPANOLAMINE HYDROCHLORIDE] [Interacting]
     Active Substance: CLOCINIZINE HYDROCHLORIDE\PHENYLPROPANOLAMINE HYDROCHLORIDE
     Indication: ASTHMA
     Dosage: UNK
     Route: 048
     Dates: start: 20191203
  2. RELVAR ELLIPTA [Suspect]
     Active Substance: FLUTICASONE FUROATE\VILANTEROL TRIFENATATE
     Indication: ASTHMA
     Dosage: UNK
     Route: 055
     Dates: start: 20191203, end: 20191204

REACTIONS (3)
  - Palpitations [Recovering/Resolving]
  - Somnolence [Recovering/Resolving]
  - Tachycardia [Recovering/Resolving]

NARRATIVE: CASE EVENT DATE: 20191203
